FAERS Safety Report 26010103 (Version 1)
Quarter: 2025Q4

REPORT INFORMATION
  Report Type: Spontaneous
  Country: NZ (occurrence: NZ)
  Receive Date: 20251107
  Receipt Date: 20251107
  Transmission Date: 20260117
  Serious: Yes (Death, Other)
  Sender: AMGEN
  Company Number: NZ-AMGEN-NZLSP2025218254

PATIENT

DRUGS (2)
  1. ETANERCEPT [Suspect]
     Active Substance: ETANERCEPT
     Indication: Rheumatoid arthritis
     Dosage: UNK
     Route: 065
  2. ETANERCEPT [Suspect]
     Active Substance: ETANERCEPT
     Indication: Sjogren^s syndrome

REACTIONS (12)
  - Death [Fatal]
  - Cataract [Unknown]
  - Cystoid macular oedema [Unknown]
  - Ulcerative keratitis [Unknown]
  - Endophthalmitis [Unknown]
  - Anterior chamber inflammation [Unknown]
  - Corneal epithelium defect [Unknown]
  - Retinal injury [Unknown]
  - Infective keratitis [Unknown]
  - Pneumonia streptococcal [Unknown]
  - Keratopathy [Unknown]
  - Post procedural infection [Unknown]
